FAERS Safety Report 7594559-3 (Version None)
Quarter: 2011Q3

REPORT INFORMATION
  Report Type: 
  Country: None (occurrence: None)
  Receive Date: 20110707
  Receipt Date: 20110627
  Transmission Date: 20111222
  Serious: Yes (Death, Other)
  Sender: FDA-Public Use
  Company Number: DE-CELGENEUS-062-21880-11062334

PATIENT
  Age: 54 Year
  Sex: Male
  Weight: 80 kg

DRUGS (7)
  1. DURAGESIC-100 [Concomitant]
     Dosage: 50 MICROGRAM
     Route: 065
  2. SPIRONOLACTONE [Concomitant]
     Dosage: 25 MILLIGRAM
     Route: 065
  3. AMPHOTERICIN B [Concomitant]
     Dosage: 4 DOSAGE FORMS
     Route: 065
  4. ZOPICLON [Concomitant]
     Dosage: 7.5 MILLIGRAM
     Route: 065
  5. ZYVOX [Concomitant]
     Dosage: 1200 MILLIGRAM
     Route: 065
  6. PANTOPRAZOLE [Concomitant]
     Dosage: 80 MILLIGRAM
     Route: 065
  7. REVLIMID [Suspect]
     Dosage: 5 MILLIGRAM
     Route: 048
     Dates: start: 20101119, end: 20110422

REACTIONS (3)
  - SEPSIS [None]
  - PANCYTOPENIA [None]
  - MULTI-ORGAN FAILURE [None]
